FAERS Safety Report 17536265 (Version 3)
Quarter: 2020Q3

REPORT INFORMATION
  Report Type: Spontaneous
  Country: DE (occurrence: DE)
  Receive Date: 20200313
  Receipt Date: 20200812
  Transmission Date: 20201102
  Serious: Yes (Other)
  Sender: FDA-Public Use
  Company Number: DE-PFIZER INC-2020104028

PATIENT
  Age: 43 Year
  Sex: Female
  Weight: 80 kg

DRUGS (1)
  1. CYTOTEC [Suspect]
     Active Substance: MISOPROSTOL
     Indication: LABOUR INDUCTION
     Dosage: 0.5 DF, TOTAL (HALF?BROKEN TABLET BY HAND)
     Route: 048
     Dates: start: 20141126, end: 20141126

REACTIONS (6)
  - Anxiety [Recovered/Resolved]
  - Abdominal pain [Recovered/Resolved with Sequelae]
  - Palpitations [Recovered/Resolved]
  - Off label use [Unknown]
  - Product use in unapproved indication [Unknown]
  - Uterine tachysystole [Recovered/Resolved]

NARRATIVE: CASE EVENT DATE: 20141126
